FAERS Safety Report 4470869-3 (Version None)
Quarter: 2004Q4

REPORT INFORMATION
  Report Type: 
  Country: None (occurrence: None)
  Receive Date: 20041011
  Receipt Date: 20040930
  Transmission Date: 20050328
  Serious: Yes (Other)
  Sender: FDA-Public Use
  Company Number: PHEH2004US10772

PATIENT
  Age: 70 Year
  Sex: Female
  Weight: 46 kg

DRUGS (2)
  1. ZOMETA [Suspect]
     Indication: BREAST CANCER METASTATIC
     Dosage: 4 MG UNSPECIFIED
     Route: 065
     Dates: start: 20030507, end: 20040930
  2. XELODA [Concomitant]

REACTIONS (4)
  - OSTEOMYELITIS [None]
  - PAIN [None]
  - SWELLING FACE [None]
  - TOOTH ABSCESS [None]
